FAERS Safety Report 13873902 (Version 1)
Quarter: 2017Q3

REPORT INFORMATION
  Report Type: Spontaneous
  Country: AU (occurrence: AU)
  Receive Date: 20170816
  Receipt Date: 20170816
  Transmission Date: 20171127
  Serious: Yes (Other)
  Sender: FDA-Public Use
  Company Number: AU-PFIZER INC-2017347094

PATIENT
  Age: 56 Year
  Sex: Female
  Weight: 93.6 kg

DRUGS (9)
  1. QUETIAPINE. [Suspect]
     Active Substance: QUETIAPINE
     Dosage: 400 MG, AT NIGHT
  2. DAPAGLIFLOZIN. [Suspect]
     Active Substance: DAPAGLIFLOZIN
     Dosage: 10 MG, IN THE MORNING
  3. ASPIRIN /00002701/ [Suspect]
     Active Substance: ASPIRIN
     Dosage: 150 MG, IN THE MORNING
  4. LURASIDONE [Suspect]
     Active Substance: LURASIDONE
     Dosage: 80 MG, AT NIGHT
  5. METFORMIN [Suspect]
     Active Substance: METFORMIN HYDROCHLORIDE
     Dosage: 1 G, 2X/DAY
  6. VENLAFAXINE HCL [Suspect]
     Active Substance: VENLAFAXINE HYDROCHLORIDE
     Dosage: 225 MG, IN THE MORNING
  7. PALIPERIDONE. [Suspect]
     Active Substance: PALIPERIDONE
     Dosage: 150 MG, EVERY 4 WEEKS
  8. ENTECAVIR MONOHYDRATE [Suspect]
     Active Substance: ENTECAVIR
     Dosage: 500 UG IN THE MORNING
  9. COLOXYL WITH SENNA [Suspect]
     Active Substance: DOCUSATE\SENNOSIDES
     Dosage: 2 TABLETS, 2X/DAY

REACTIONS (4)
  - Aortic valve incompetence [Unknown]
  - Mitral valve incompetence [Unknown]
  - Tricuspid valve incompetence [Unknown]
  - Aortic dilatation [Unknown]

NARRATIVE: CASE EVENT DATE: 20170808
